FAERS Safety Report 25101578 (Version 2)
Quarter: 2025Q2

REPORT INFORMATION
  Report Type: Spontaneous
  Country: US (occurrence: US)
  Receive Date: 20250320
  Receipt Date: 20250513
  Transmission Date: 20250716
  Serious: No
  Sender: BAXTER
  Company Number: US-BAXTER-2025BAX012606

PATIENT
  Age: 46 Year

DRUGS (2)
  1. CYCLOPHOSPHAMIDE [Suspect]
     Active Substance: CYCLOPHOSPHAMIDE
     Indication: Lupus nephritis
     Route: 065
  2. RITUXIMAB [Suspect]
     Active Substance: RITUXIMAB
     Route: 065

REACTIONS (7)
  - Depressed mood [Unknown]
  - Feeling abnormal [Unknown]
  - Abdominal pain upper [Unknown]
  - Nausea [Unknown]
  - Vomiting [Unknown]
  - Alopecia [Unknown]
  - Diarrhoea [Unknown]
